FAERS Safety Report 25854537 (Version 1)
Quarter: 2025Q3

REPORT INFORMATION
  Report Type: Report from Study
  Country: US (occurrence: US)
  Receive Date: 20250927
  Receipt Date: 20250927
  Transmission Date: 20251021
  Serious: Yes (Other)
  Sender: ABBVIE
  Company Number: US-ABBVIE-6271022

PATIENT
  Age: 66 Year
  Sex: Male
  Weight: 99.79 kg

DRUGS (4)
  1. HUMIRA [Suspect]
     Active Substance: ADALIMUMAB
     Indication: Rheumatoid arthritis
     Route: 058
     Dates: end: 202501
  2. HUMIRA [Suspect]
     Active Substance: ADALIMUMAB
     Dosage: LAST ADMIN DATE - 2025?DOSE FORM -SOLUTION FOR INJECTION IN PRE-FILLED PEN
     Route: 058
     Dates: start: 202502
  3. HUMIRA [Suspect]
     Active Substance: ADALIMUMAB
     Route: 058
     Dates: start: 202509, end: 202509
  4. HUMIRA [Suspect]
     Active Substance: ADALIMUMAB
     Route: 058
     Dates: start: 2021

REACTIONS (5)
  - Peripheral nerve injury [Unknown]
  - Pain in extremity [Unknown]
  - Peripheral swelling [Recovering/Resolving]
  - Carpal tunnel syndrome [Unknown]
  - Peripheral swelling [Recovering/Resolving]

NARRATIVE: CASE EVENT DATE: 20240801
